FAERS Safety Report 7874683-8 (Version None)
Quarter: 2011Q4

REPORT INFORMATION
  Report Type: 
  Country: None (occurrence: None)
  Receive Date: 20111031
  Receipt Date: 20111026
  Transmission Date: 20120403
  Serious: Yes (Hospitalization)
  Sender: FDA-Public Use
  Company Number: SK-PFIZER INC-2011260763

PATIENT
  Age: 35 Year
  Sex: Male
  Weight: 130 kg

DRUGS (1)
  1. SOMATROPIN [Suspect]
     Indication: GROWTH HORMONE DEFICIENCY
     Dosage: 0.2 MG, 1X/DAY
     Dates: start: 20091028, end: 20110815

REACTIONS (1)
  - PITUITARY TUMOUR BENIGN [None]
